FAERS Safety Report 9311051 (Version 1)
Quarter: 2013Q1

REPORT INFORMATION
  Report Type: Spontaneous
  Country: US (occurrence: None)
  Receive Date: 20130114
  Receipt Date: 20130114
  Transmission Date: 20140127
  Serious: Yes (Hospitalization)
  Sender: FDA-Public Use
  Company Number: 126758-1

PATIENT
  Age: 69 Year
  Sex: Male
  Weight: 78 kg

DRUGS (1)
  1. ADRIAMYCIN (DOXORUBICIN) INJ. USP 10MG/5ML - BEDFORD LABS, INC. [Suspect]
     Indication: PLASMA CELL MYELOMA
     Route: 042
     Dates: start: 20110830, end: 20110902

REACTIONS (2)
  - Flank pain [None]
  - Transfusion [None]
